FAERS Safety Report 4454515-0 (Version None)
Quarter: 2004Q3

REPORT INFORMATION
  Report Type: 
  Country: None (occurrence: None)
  Receive Date: 20040917
  Receipt Date: 20040917
  Transmission Date: 20050211
  Serious: Yes (Death)
  Sender: FDA-Public Use
  Company Number: None

PATIENT
  Age: 23 Year
  Sex: Male
  Weight: 195 kg

DRUGS (2)
  1. FLUOXETINE [Suspect]
     Dosage: ORAL
     Route: 048
     Dates: start: 20020228, end: 20020715
  2. ASTHMA INHALER [Concomitant]

REACTIONS (3)
  - ABNORMAL BEHAVIOUR [None]
  - COMPLETED SUICIDE [None]
  - INJURY ASPHYXIATION [None]
